FAERS Safety Report 9278726 (Version 1)
Quarter: 2013Q2

REPORT INFORMATION
  Report Type: Spontaneous
  Country: FR (occurrence: None)
  Receive Date: 20130503
  Receipt Date: 20130514
  Transmission Date: 20140414
  Serious: Yes (Death, Other)
  Sender: FDA-Public Use
  Company Number: MC201300209

PATIENT
  Age: 76 Year
  Sex: Male

DRUGS (3)
  1. ANGIOMAX [Suspect]
     Indication: PERCUTANEOUS CORONARY INTERVENTION
     Route: 040
  2. ASPIRIN (ACETYLSALICYLIC ACID) [Concomitant]
  3. CLOPIDOGREL (CLOPIDOGREL SULFATE) [Concomitant]

REACTIONS (8)
  - Cardiogenic shock [None]
  - Haemorrhage [None]
  - Mouth haemorrhage [None]
  - Pulmonary haemorrhage [None]
  - Haemoglobin decreased [None]
  - Prothrombin level increased [None]
  - Coagulation factor VII level increased [None]
  - Coagulation factor V level abnormal [None]
